FAERS Safety Report 8462627-X (Version None)
Quarter: 2012Q2

REPORT INFORMATION
  Report Type: 
  Country: None (occurrence: None)
  Receive Date: 20120625
  Receipt Date: 20120618
  Transmission Date: 20120825
  Serious: Yes (Death, Hospitalization)
  Sender: FDA-Public Use
  Company Number: US-INCYTE CORPORATION-2012IN000850

PATIENT
  Sex: Male

DRUGS (3)
  1. ALLOPURINOL [Concomitant]
     Dosage: 300 MG, UNK
  2. JAKAFI [Suspect]
     Indication: MYELOFIBROSIS
     Dosage: 10 MG, BID
     Route: 048
  3. HYDROXYUREA [Concomitant]
     Dosage: 500 MG, UNK

REACTIONS (3)
  - DEATH [None]
  - MUSCLE STRAIN [None]
  - SEPTIC SHOCK [None]
